FAERS Safety Report 4274441-X (Version None)
Quarter: 2004Q1

REPORT INFORMATION
  Report Type: 
  Country: None (occurrence: None)
  Receive Date: 20040120
  Receipt Date: 20030905
  Transmission Date: 20041129
  Serious: Yes (Death, Hospitalization)
  Sender: FDA-Public Use
  Company Number: US-BRISTOL-MYERS SQUIBB COMPANY-12375648

PATIENT
  Age: 7 Decade
  Sex: Female

DRUGS (18)
  1. IFOSFAMIDE [Suspect]
     Indication: SARCOMA
     Route: 042
  2. DECADRON [Concomitant]
     Indication: PREMEDICATION
  3. KYTRIL [Concomitant]
     Indication: PREMEDICATION
  4. MESNA [Concomitant]
     Indication: PREMEDICATION
  5. LASIX [Concomitant]
  6. SPIRONOLACTONE [Concomitant]
  7. PAXIL [Concomitant]
  8. PRILOSEC [Concomitant]
  9. SYNTHROID [Concomitant]
  10. MULTI-VITAMINS [Concomitant]
  11. CALCIUM [Concomitant]
  12. VITAMIN E [Concomitant]
  13. LIPITOR [Concomitant]
  14. QUININE [Concomitant]
  15. TYLENOL W/ CODEINE NO. 3 [Concomitant]
  16. DILAUDID [Concomitant]
  17. PROCRIT [Concomitant]
  18. HYDRATION [Concomitant]
     Route: 042

REACTIONS (3)
  - ASTHENIA [None]
  - CONFUSIONAL STATE [None]
  - SARCOMA [None]
